FAERS Safety Report 24737185 (Version 1)
Quarter: 2024Q4

REPORT INFORMATION
  Report Type: Spontaneous
  Country: US (occurrence: None)
  Receive Date: 20241213
  Receipt Date: 20241213
  Transmission Date: 20250114
  Serious: No
  Sender: Public
  Company Number: None

PATIENT
  Age: 31 Year

DRUGS (1)
  1. OCTAGAM IMMUNE GLOBULIN (HUMAN) [Suspect]
     Active Substance: HUMAN IMMUNOGLOBULIN G
     Indication: Encephalopathy
     Route: 042
     Dates: start: 20241212

REACTIONS (5)
  - Urticaria [None]
  - Tongue disorder [None]
  - Drooling [None]
  - Dysphagia [None]
  - Trismus [None]

NARRATIVE: CASE EVENT DATE: 20241212
